FAERS Safety Report 8958849 (Version 2)
Quarter: 2012Q4

REPORT INFORMATION
  Report Type: 
  Country: US (occurrence: US)
  Receive Date: 20121212
  Receipt Date: 20121217
  Transmission Date: 20130627
  Serious: Yes (Other)
  Sender: FDA-Public Use
  Company Number: US-BAYER-2012-129313

PATIENT
  Age: 26 Year
  Sex: Female
  Weight: 102.95 kg

DRUGS (17)
  1. YAZ [Suspect]
     Indication: CONTRACEPTION
  2. VITAMIN D2 [Concomitant]
     Indication: CONSTIPATION
     Dosage: 50000 u, UNK
  3. INSULIN ASPART [Concomitant]
     Dosage: 2.4 units /hr
  4. INSULIN ASPART [Concomitant]
     Dosage: 100 U/mL, use three times a day before meals
     Route: 058
  5. INSULIN GLARGINE [Concomitant]
     Dosage: 100 U/ml, UNK
  6. INSULIN GLARGINE [Concomitant]
     Dosage: 65 units every night at bedtime
     Route: 058
  7. HUMAN RECOMBINANT ANALOG [Concomitant]
     Dosage: 100 U/ml, UNK
  8. LIPITOR [Concomitant]
     Dosage: 10 mg, UNK
  9. ASPIRIN [Concomitant]
     Dosage: 81 mg, UNK
  10. NEXIUM [Concomitant]
     Dosage: 20 mg, UNK
  11. LISINOPRIL/HYDROCHLOROTHIAZIDE [Concomitant]
     Dosage: 20/26 mg once a day
     Route: 048
  12. NOVOLOG [Concomitant]
  13. LANTUS [Concomitant]
  14. ACETAMINOPHEN [Concomitant]
  15. ATORVASTATIN CALCIUM [Concomitant]
     Dosage: 10 mg, every day
     Route: 048
  16. METHOCARBAMOL [Concomitant]
     Indication: MUSCLE RELAXATION
     Dosage: 500 mg, one tablet three time a day
     Route: 048
  17. INSULIN PUMP [Concomitant]

REACTIONS (2)
  - Pulmonary embolism [None]
  - Deep vein thrombosis [None]
